FAERS Safety Report 10230471 (Version 1)
Quarter: 2014Q2

REPORT INFORMATION
  Report Type: Spontaneous
  Country: US (occurrence: US)
  Receive Date: 20140611
  Receipt Date: 20140611
  Transmission Date: 20141212
  Serious: No
  Sender: FDA-Public Use
  Company Number: US-INCYTE CORPORATION-2014IN000887

PATIENT
  Age: 83 Year
  Sex: Female

DRUGS (1)
  1. JAKAFI [Suspect]
     Indication: MYELOFIBROSIS
     Dosage: 10 MG, QD
     Route: 048
     Dates: start: 20140324

REACTIONS (4)
  - Hypertension [Unknown]
  - Abdominal distension [Unknown]
  - Back disorder [Unknown]
  - Arthralgia [Unknown]
